FAERS Safety Report 9700263 (Version 4)
Quarter: 2016Q4

REPORT INFORMATION
  Report Type: Report from Study
  Country: JP (occurrence: JP)
  Receive Date: 20131121
  Receipt Date: 20161216
  Transmission Date: 20170207
  Serious: Yes (Other)
  Sender: FDA-Public Use
  Company Number: JP-ROCHE-1306671

PATIENT

DRUGS (5)
  1. RITUXIMAB [Suspect]
     Active Substance: RITUXIMAB
     Indication: B-CELL LYMPHOMA
     Route: 042
  2. CYCLOPHOSPHAMIDE. [Suspect]
     Active Substance: CYCLOPHOSPHAMIDE
     Indication: B-CELL LYMPHOMA
     Dosage: ON DAY 1
     Route: 042
  3. PREDNISONE. [Suspect]
     Active Substance: PREDNISONE
     Indication: B-CELL LYMPHOMA
     Dosage: ON DAYS 1-5
     Route: 048
  4. VINCRISTINE [Suspect]
     Active Substance: VINCRISTINE
     Indication: B-CELL LYMPHOMA
     Dosage: 1.4 MG/M2 (CAPPED AT 2 MG) ON DAY 1
     Route: 042
  5. DOXORUBICIN [Suspect]
     Active Substance: DOXORUBICIN
     Indication: B-CELL LYMPHOMA
     Dosage: ON DAY 1
     Route: 042

REACTIONS (17)
  - Infection [Unknown]
  - Neutropenic infection [Unknown]
  - Pneumonia [Unknown]
  - Anaphylactoid reaction [Unknown]
  - Neutropenia [Unknown]
  - Cystitis [Unknown]
  - Pulmonary mycosis [Unknown]
  - Pyelonephritis [Unknown]
  - CD4 lymphocytes decreased [Unknown]
  - Alanine aminotransferase increased [Unknown]
  - Leukopenia [Unknown]
  - Herpes simplex [Unknown]
  - Deep vein thrombosis [Unknown]
  - Febrile neutropenia [Unknown]
  - Herpes zoster disseminated [Unknown]
  - Back pain [Unknown]
  - Weight decreased [Unknown]
